FAERS Safety Report 8194210-8 (Version None)
Quarter: 2012Q1

REPORT INFORMATION
  Report Type: 
  Country: None (occurrence: None)
  Receive Date: 20120308
  Receipt Date: 20120227
  Transmission Date: 20120608
  Serious: Yes (Other)
  Sender: FDA-Public Use
  Company Number: US-BRISTOL-MYERS SQUIBB COMPANY-16421018

PATIENT
  Age: 57 Year
  Sex: Male
  Weight: 90 kg

DRUGS (6)
  1. IRON [Concomitant]
     Dosage: 1 DF: 1 PILL DAILY
  2. DEXAMETHASONE [Suspect]
  3. AMBIEN [Suspect]
  4. CELEXA [Concomitant]
  5. OMEPRAZOLE [Concomitant]
  6. YERVOY [Suspect]
     Indication: METASTATIC MALIGNANT MELANOMA

REACTIONS (6)
  - FATIGUE [None]
  - HEADACHE [None]
  - METASTASES TO CENTRAL NERVOUS SYSTEM [None]
  - WEIGHT DECREASED [None]
  - BALANCE DISORDER [None]
  - DYSARTHRIA [None]
